FAERS Safety Report 19596756 (Version 1)
Quarter: 2021Q3

REPORT INFORMATION
  Report Type: Spontaneous
  Country: HR (occurrence: HR)
  Receive Date: 20210722
  Receipt Date: 20210722
  Transmission Date: 20211014
  Serious: Yes (Other)
  Sender: FDA-Public Use
  Company Number: HR-MYLANLABS-2021M1043677

PATIENT
  Age: 71 Year
  Sex: Female
  Weight: 80 kg

DRUGS (2)
  1. HULIO [Suspect]
     Active Substance: ADALIMUMAB-FKJP
     Indication: SERONEGATIVE ARTHRITIS
  2. HULIO [Suspect]
     Active Substance: ADALIMUMAB-FKJP
     Indication: SPONDYLITIS
     Dosage: 40 MILLIGRAM
     Route: 058
     Dates: start: 20191129, end: 20201105

REACTIONS (3)
  - Drug level decreased [Recovered/Resolved]
  - Drug ineffective [Recovered/Resolved]
  - Drug specific antibody present [Recovered/Resolved]

NARRATIVE: CASE EVENT DATE: 20210105
